FAERS Safety Report 5629391-0 (Version None)
Quarter: 2008Q1

REPORT INFORMATION
  Report Type: 
  Country: None (occurrence: None)
  Receive Date: 20080218
  Receipt Date: 20080214
  Transmission Date: 20080703
  Serious: Yes (Other)
  Sender: FDA-Public Use
  Company Number: IT-BAYER-200813063GPV

PATIENT
  Age: 79 Year
  Sex: Male

DRUGS (2)
  1. SORAFENIB [Suspect]
     Indication: NEOPLASM MALIGNANT
     Route: 065
  2. SORAFENIB [Suspect]
     Route: 065

REACTIONS (4)
  - BLISTER [None]
  - ERYTHEMA [None]
  - SKIN EROSION [None]
  - SKIN LESION [None]
